FAERS Safety Report 19595961 (Version 2)
Quarter: 2021Q3

REPORT INFORMATION
  Report Type: Spontaneous
  Country: US (occurrence: US)
  Receive Date: 20210722
  Receipt Date: 20210826
  Transmission Date: 20211014
  Serious: No
  Sender: FDA-Public Use
  Company Number: US-GILEAD-2021-0541428

PATIENT
  Age: 62 Year
  Sex: Male

DRUGS (4)
  1. DIAZEPAM. [Concomitant]
     Active Substance: DIAZEPAM
  2. IBUPROFEN. [Concomitant]
     Active Substance: IBUPROFEN
  3. METHADONE HYDROCHLORIDE. [Concomitant]
     Active Substance: METHADONE HYDROCHLORIDE
  4. EPCLUSA [Suspect]
     Active Substance: SOFOSBUVIR\VELPATASVIR
     Indication: CHRONIC HEPATITIS C
     Dosage: 1 DOSAGE FORM, QD
     Route: 048

REACTIONS (5)
  - Constipation [Unknown]
  - Vomiting [Recovered/Resolved]
  - Insomnia [Unknown]
  - Product dose omission issue [Unknown]
  - Intentional dose omission [Recovered/Resolved]
